FAERS Safety Report 20975958 (Version 1)
Quarter: 2022Q2

REPORT INFORMATION
  Report Type: Spontaneous
  Country: US (occurrence: None)
  Receive Date: 20220617
  Receipt Date: 20220617
  Transmission Date: 20220721
  Serious: No
  Sender: FDA-Public Use
  Company Number: None

PATIENT
  Age: 68 Year
  Sex: Female

DRUGS (1)
  1. BOTOX [Suspect]
     Active Substance: ONABOTULINUMTOXINA
     Dosage: OTHER QUANTITY : 20 UNITS;?

REACTIONS (3)
  - Salivary hypersecretion [None]
  - Choking [None]
  - Condition aggravated [None]

NARRATIVE: CASE EVENT DATE: 20220617
